FAERS Safety Report 22313048 (Version 1)
Quarter: 2023Q2

REPORT INFORMATION
  Report Type: Spontaneous
  Country: US (occurrence: US)
  Receive Date: 20230512
  Receipt Date: 20230512
  Transmission Date: 20230722
  Serious: Yes (Disabling, Other)
  Sender: FDA-Public Use
  Company Number: US-BoehringerIngelheim-2023-BI-235977

PATIENT
  Sex: Female

DRUGS (1)
  1. ATROVENT HFA [Suspect]
     Active Substance: IPRATROPIUM BROMIDE
     Indication: Chronic obstructive pulmonary disease
     Dosage: TWO PUFFS; INHALATION AEROSOL
     Route: 055

REACTIONS (6)
  - Multiple sclerosis [Recovered/Resolved]
  - Urinary tract infection [Not Recovered/Not Resolved]
  - Pelvic mass [Unknown]
  - Visual impairment [Unknown]
  - Dysphagia [Unknown]
  - Musculoskeletal disorder [Unknown]
